FAERS Safety Report 7829246-7 (Version None)
Quarter: 2011Q4

REPORT INFORMATION
  Report Type: 
  Country: None (occurrence: None)
  Receive Date: 20111020
  Receipt Date: 20111014
  Transmission Date: 20120403
  Serious: Yes (Hospitalization, Other)
  Sender: FDA-Public Use
  Company Number: US-ABBOTT-11P-163-0866052-00

PATIENT
  Sex: Female
  Weight: 81.72 kg

DRUGS (8)
  1. HYDROCODONE BITARTRATE [Concomitant]
     Indication: PAIN
     Dosage: 10/325MG AS NEEDED
     Dates: start: 20040101
  2. ZOFRAN [Concomitant]
     Indication: NAUSEA
  3. LEVOTHYROXINE SODIUM [Concomitant]
     Indication: HYPOTHYROIDISM
     Dates: start: 19920101
  4. PANCREAZE [Concomitant]
     Indication: PANCREATIC INSUFFICIENCY
     Dosage: WITH MEALS
     Dates: start: 20040101
  5. REQUIP [Concomitant]
     Indication: RESTLESS LEGS SYNDROME
  6. HUMIRA [Suspect]
     Indication: PSORIATIC ARTHROPATHY
     Dates: start: 20110804, end: 20110929
  7. PREDNISONE [Concomitant]
     Indication: SYSTEMIC LUPUS ERYTHEMATOSUS
  8. ALEVE [Concomitant]
     Indication: PAIN
     Dosage: 1-2 AS NEEDED

REACTIONS (7)
  - DIARRHOEA [None]
  - ABDOMINAL PAIN [None]
  - CLOSTRIDIAL INFECTION [None]
  - URINARY TRACT INFECTION [None]
  - ABDOMINAL DISTENSION [None]
  - BLADDER PAIN [None]
  - MYASTHENIA GRAVIS [None]
